FAERS Safety Report 4621138-X (Version None)
Quarter: 2005Q1

REPORT INFORMATION
  Report Type: 
  Country: None (occurrence: None)
  Receive Date: 20050328
  Receipt Date: 20050317
  Transmission Date: 20050727
  Serious: Yes (Other)
  Sender: FDA-Public Use
  Company Number: UKP05000101

PATIENT
  Age: 63 Year
  Sex: Female
  Weight: 53 kg

DRUGS (3)
  1. ACTONEL [Suspect]
     Indication: OSTEOPOROSIS
     Dosage: 70 MG, DAILY, ORAL
     Route: 048
     Dates: start: 20050130
  2. BIMATOPROST (BIMATOPROST) [Concomitant]
  3. CALCICHEW D3   (CALCIUM CARBONATE, COLECALCIFEROL) [Concomitant]

REACTIONS (2)
  - MEDICATION ERROR [None]
  - MYOCARDIAL INFARCTION [None]
